FAERS Safety Report 16641102 (Version 2)
Quarter: 2019Q3

REPORT INFORMATION
  Report Type: Spontaneous
  Country: US (occurrence: US)
  Receive Date: 20190729
  Receipt Date: 20190823
  Transmission Date: 20191004
  Serious: No
  Sender: FDA-Public Use
  Company Number: US-ASTRAZENECA-2019SE96408

PATIENT
  Age: 3971 Week
  Sex: Female
  Weight: 68 kg

DRUGS (1)
  1. SYMBICORT [Suspect]
     Active Substance: BUDESONIDE\FORMOTEROL FUMARATE DIHYDRATE
     Indication: ASTHMA
     Dosage: 160/4.5 UG, TWO PUFFS TWICE DAILY
     Route: 055
     Dates: start: 2016

REACTIONS (4)
  - Product dose omission [Unknown]
  - Intentional device misuse [Unknown]
  - Device defective [Unknown]
  - Dysstasia [Unknown]

NARRATIVE: CASE EVENT DATE: 20190630
